FAERS Safety Report 13199827 (Version 21)
Quarter: 2020Q2

REPORT INFORMATION
  Report Type: Report from Study
  Country: US (occurrence: US)
  Receive Date: 20170208
  Receipt Date: 20200605
  Transmission Date: 20200713
  Serious: Yes (Hospitalization, Other)
  Sender: FDA-Public Use
  Company Number: US-ACTELION-A-NJ2017-149593

PATIENT
  Age: 39 Year
  Sex: Female
  Weight: 91.61 kg

DRUGS (11)
  1. ADEMPAS [Concomitant]
     Active Substance: RIOCIGUAT
     Dosage: 2 MG, TID
  2. UPTRAVI [Suspect]
     Active Substance: SELEXIPAG
     Dosage: 600 MCG, BID
     Route: 048
     Dates: start: 20161222
  3. UPTRAVI [Suspect]
     Active Substance: SELEXIPAG
     Dosage: 400 MCG, BID
     Route: 048
  4. UPTRAVI [Suspect]
     Active Substance: SELEXIPAG
     Dosage: 200 MCG, BID
     Route: 048
  5. UPTRAVI [Suspect]
     Active Substance: SELEXIPAG
     Dosage: 200 MCG, BID
     Route: 048
     Dates: start: 20190429
  6. ADEMPAS [Concomitant]
     Active Substance: RIOCIGUAT
     Dosage: 0.5 MG, TID
  7. UPTRAVI [Suspect]
     Active Substance: SELEXIPAG
     Indication: PULMONARY HYPERTENSION
     Dosage: 800 MCG, BID
     Route: 048
     Dates: start: 201906
  8. OXYGEN. [Concomitant]
     Active Substance: OXYGEN
  9. XARELTO [Concomitant]
     Active Substance: RIVAROXABAN
  10. UPTRAVI [Suspect]
     Active Substance: SELEXIPAG
     Dosage: 1200 MCG, BID
     Route: 048
  11. UPTRAVI [Suspect]
     Active Substance: SELEXIPAG
     Dosage: 1400 MCG, BID
     Route: 048

REACTIONS (29)
  - Sickle cell disease [Unknown]
  - Pneumonia [Unknown]
  - Fluid retention [Unknown]
  - Cardiac operation [Unknown]
  - Fluid overload [Unknown]
  - Dizziness [Recovering/Resolving]
  - Sickle cell anaemia with crisis [Unknown]
  - Product dose omission [Unknown]
  - Haemoglobin decreased [Unknown]
  - Pain [Recovering/Resolving]
  - Diarrhoea [Unknown]
  - Oedema [Unknown]
  - Headache [Recovering/Resolving]
  - Transfusion [Unknown]
  - Neck pain [Not Recovered/Not Resolved]
  - Facial pain [Recovering/Resolving]
  - Vomiting [Unknown]
  - Hospitalisation [Unknown]
  - Electrophoresis [Unknown]
  - Dyspnoea [Unknown]
  - Ankle fracture [Unknown]
  - Cardiac failure [Unknown]
  - Nausea [Unknown]
  - Pulmonary arterial hypertension [Unknown]
  - Syncope [Unknown]
  - Deafness [Unknown]
  - Haemodialysis [Unknown]
  - Pain in jaw [Not Recovered/Not Resolved]
  - Malaise [Unknown]

NARRATIVE: CASE EVENT DATE: 20190416
